FAERS Safety Report 15506348 (Version 2)
Quarter: 2019Q4

REPORT INFORMATION
  Report Type: Report from Study
  Country: US (occurrence: US)
  Receive Date: 20181016
  Receipt Date: 20191120
  Transmission Date: 20200122
  Serious: Yes (Hospitalization)
  Sender: FDA-Public Use
  Company Number: US-AMGEN-USACT2018100894

PATIENT
  Age: 56 Year
  Sex: Male

DRUGS (41)
  1. LABETALOL [Concomitant]
     Active Substance: LABETALOL\LABETALOL HYDROCHLORIDE
     Dosage: UNK
     Dates: start: 2016
  2. RENAVIT [Concomitant]
     Dosage: UNK
     Dates: start: 2016
  3. PANTOPRAZOLE [Concomitant]
     Active Substance: PANTOPRAZOLE
     Dosage: UNK
     Dates: start: 2016
  4. GLUCAGON. [Concomitant]
     Active Substance: GLUCAGON
     Dosage: UNK
     Dates: start: 20171206
  5. DEXTROSE. [Concomitant]
     Active Substance: DEXTROSE
     Dosage: UNK
     Dates: start: 20071206
  6. DARBEPOETIN ALFA [Suspect]
     Active Substance: DARBEPOETIN ALFA
     Dosage: 65 MICROGRAM, QWK
     Route: 058
     Dates: start: 20170919, end: 20171002
  7. DARBEPOETIN ALFA [Suspect]
     Active Substance: DARBEPOETIN ALFA
     Dosage: 80 MICROGRAM, QWK
     Route: 058
     Dates: start: 20180313, end: 20180319
  8. FLOMAX [Concomitant]
     Active Substance: TAMSULOSIN HYDROCHLORIDE
     Dosage: UNK
     Dates: start: 2016
  9. LIPITOR [Concomitant]
     Active Substance: ATORVASTATIN CALCIUM
     Dosage: UNK
     Dates: start: 20171221
  10. HYDROCHLOROTHIAZIDE. [Concomitant]
     Active Substance: HYDROCHLOROTHIAZIDE
     Dosage: UNK
     Dates: start: 20171221
  11. METOCLOPRAMIDE. [Concomitant]
     Active Substance: METOCLOPRAMIDE
     Dosage: UNK
     Dates: start: 20171221
  12. NOVOLIN 30R [Concomitant]
     Active Substance: INSULIN HUMAN
     Dosage: UNK
     Dates: start: 20171221
  13. DARBEPOETIN ALFA [Suspect]
     Active Substance: DARBEPOETIN ALFA
     Dosage: 60 MUG, QWK
     Route: 058
     Dates: start: 20180712, end: 20180808
  14. NIFEDIPINE. [Concomitant]
     Active Substance: NIFEDIPINE
     Dosage: UNK
     Dates: start: 2016
  15. CLONIDINE HCL [Concomitant]
     Active Substance: CLONIDINE HYDROCHLORIDE
     Dosage: UNK
     Dates: start: 2016
  16. SERTRALINE [Concomitant]
     Active Substance: SERTRALINE HYDROCHLORIDE
     Dosage: UNK
     Dates: start: 20171221
  17. MECLIZINE [Concomitant]
     Active Substance: MECLIZINE HYDROCHLORIDE
     Dosage: UNK
     Dates: start: 20171221
  18. VENOFER [Concomitant]
     Active Substance: IRON SUCROSE
     Dosage: UNK
     Dates: start: 20170808
  19. FOLIC ACID. [Concomitant]
     Active Substance: FOLIC ACID
     Dosage: UNK
     Dates: start: 2016
  20. RENAVIT [Concomitant]
  21. LIQUACEL [Concomitant]
     Dosage: UNK
     Dates: start: 201705
  22. ZOFRAN [Concomitant]
     Active Substance: ONDANSETRON HYDROCHLORIDE
     Dosage: UNK
     Dates: start: 20171206
  23. HYDRALAZINE [Concomitant]
     Active Substance: HYDRALAZINE HYDROCHLORIDE
     Dosage: UNK
     Dates: start: 20171206
  24. INSULIN LISPRO [Concomitant]
     Active Substance: INSULIN LISPRO
     Dosage: UNK
     Dates: start: 20171206
  25. DARBEPOETIN ALFA [Suspect]
     Active Substance: DARBEPOETIN ALFA
     Dosage: 125 MICROGRAM, QWK
     Route: 058
     Dates: start: 20180320, end: 20180330
  26. DARBEPOETIN ALFA [Suspect]
     Active Substance: DARBEPOETIN ALFA
     Dosage: 100 MICROGRAM, QWK
     Route: 058
     Dates: start: 20180331, end: 20180613
  27. OMEPRAZOLE. [Concomitant]
     Active Substance: OMEPRAZOLE
     Dosage: UNK
     Dates: start: 20171221
  28. DARBEPOETIN ALFA [Suspect]
     Active Substance: DARBEPOETIN ALFA
     Dosage: 60 MICROGRAM, QWK
     Route: 058
     Dates: start: 20171102, end: 20180124
  29. ACETAMINOPHEN. [Concomitant]
     Active Substance: ACETAMINOPHEN
     Dosage: UNK
     Dates: start: 20171206
  30. DARBEPOETIN ALFA [Suspect]
     Active Substance: DARBEPOETIN ALFA
     Dosage: 80 MICROGRAM, QWK
     Route: 058
     Dates: start: 20171003, end: 20171016
  31. LYRICA [Concomitant]
     Active Substance: PREGABALIN
     Dosage: UNK
     Dates: start: 2016
  32. JANUVIA [Concomitant]
     Active Substance: SITAGLIPTIN PHOSPHATE
     Dosage: UNK
     Dates: start: 20171221
  33. LASIX [Concomitant]
     Active Substance: FUROSEMIDE
     Dosage: UNK
     Dates: start: 20171221
  34. LEVEMIR [Concomitant]
     Active Substance: INSULIN DETEMIR
     Dosage: UNK
     Dates: start: 20171221
  35. DARBEPOETIN ALFA [Suspect]
     Active Substance: DARBEPOETIN ALFA
     Indication: ANAEMIA
     Dosage: 60 MICROGRAM, QWK
     Route: 058
     Dates: start: 20170812, end: 20170918
  36. DARBEPOETIN ALFA [Suspect]
     Active Substance: DARBEPOETIN ALFA
     Dosage: 80 MICROGRAM, QWK
     Route: 058
     Dates: start: 20180125, end: 20180220
  37. SEVELAMER [Concomitant]
     Active Substance: SEVELAMER
     Dosage: UNK
     Dates: start: 2016
  38. VITAMIN B COMPLEX WITH C [Concomitant]
     Active Substance: ASCORBIC ACID\CALCIUM PANTOTHENATE\CYANOCOBALAMIN\NIACINAMIDE\PYRIDOXINE HYDROCHLORIDE\RIBOFLAVIN\THIAMINE MONONITRATE
     Dosage: UNK
     Dates: start: 2016
  39. ASPIRIN. [Concomitant]
     Active Substance: ASPIRIN
     Dosage: UNK
     Dates: start: 20170719
  40. LOSARTAN. [Concomitant]
     Active Substance: LOSARTAN
     Dosage: UNK
     Dates: start: 20171221
  41. MAGNESIUM HYDROXIDE. [Concomitant]
     Active Substance: MAGNESIUM HYDROXIDE
     Dosage: UNK
     Dates: start: 20171206

REACTIONS (1)
  - Brachiocephalic vein thrombosis [Recovered/Resolved with Sequelae]

NARRATIVE: CASE EVENT DATE: 20180625
